FAERS Safety Report 21936584 (Version 1)
Quarter: 2023Q1

REPORT INFORMATION
  Report Type: Spontaneous
  Country: US (occurrence: US)
  Receive Date: 20230201
  Receipt Date: 20230201
  Transmission Date: 20230417
  Serious: Yes (Death, Other)
  Sender: FDA-Public Use
  Company Number: US-PFIZER INC-202300041568

PATIENT
  Age: 65 Year
  Sex: Female

DRUGS (8)
  1. HYDROXYZINE PAMOATE [Suspect]
     Active Substance: HYDROXYZINE PAMOATE
     Dosage: UNK (INGESTION)
     Route: 048
  2. BUPROPION [Suspect]
     Active Substance: BUPROPION
     Dosage: UNK (INGESTION; ER)
     Route: 048
  3. RISPERIDONE [Suspect]
     Active Substance: RISPERIDONE
     Dosage: UNK (INGESTION)
     Route: 048
  4. LISINOPRIL [Suspect]
     Active Substance: LISINOPRIL
     Dosage: UNK (INGESTION)
     Route: 048
  5. LOSARTAN [Suspect]
     Active Substance: LOSARTAN
     Dosage: UNK (INGESTION)
     Route: 048
  6. DEXAMETHASONE [Suspect]
     Active Substance: DEXAMETHASONE
     Dosage: UNK (INGESTION)
     Route: 048
  7. CLOPIDOGREL [Suspect]
     Active Substance: CLOPIDOGREL BISULFATE
     Dosage: UNK (INGESTION)
     Route: 048
  8. OMEPRAZOLE [Suspect]
     Active Substance: OMEPRAZOLE
     Dosage: UNK (INGESTION; ER)
     Route: 048

REACTIONS (2)
  - Medication error [Fatal]
  - Death [Fatal]

NARRATIVE: CASE EVENT DATE: 20210101
